FAERS Safety Report 19837574 (Version 3)
Quarter: 2021Q4

REPORT INFORMATION
  Report Type: Report from Study
  Country: FR (occurrence: FR)
  Receive Date: 20210916
  Receipt Date: 20211009
  Transmission Date: 20220303
  Serious: Yes (Hospitalization)
  Sender: FDA-Public Use
  Company Number: FR-ROCHE-2906704

PATIENT
  Age: 63 Year
  Sex: Male
  Weight: 76 kg

DRUGS (4)
  1. BEVACIZUMAB [Suspect]
     Active Substance: BEVACIZUMAB
     Indication: Pleural mesothelioma malignant
     Dosage: DATE OF LAST ADMIN. BEFORE SAE: 06/JUL/2021
     Route: 042
     Dates: start: 20200728
  2. ATEZOLIZUMAB [Suspect]
     Active Substance: ATEZOLIZUMAB
     Indication: Pleural mesothelioma malignant
     Dosage: DATE OF LAST ADMIN. BEFORE SAE: 06/JUL/2021
     Route: 041
     Dates: start: 20200728
  3. PEMETREXED [Suspect]
     Active Substance: PEMETREXED
     Indication: Pleural mesothelioma malignant
     Dosage: DATE OF LAST ADMINISTRATION BEFORE SAE: 01/SEP/2020
     Route: 042
     Dates: start: 20200728
  4. CARBOPLATIN [Suspect]
     Active Substance: CARBOPLATIN
     Indication: Pleural mesothelioma malignant
     Dosage: DATE OF LAST ADMINISTRATION BEFORE SAE: 01/SEP/2020
     Route: 042
     Dates: start: 20200728

REACTIONS (2)
  - Anaemia [Recovered/Resolved]
  - Anaemia [Unknown]

NARRATIVE: CASE EVENT DATE: 20210824
